FAERS Safety Report 5018460-4 (Version None)
Quarter: 2006Q2

REPORT INFORMATION
  Report Type: 
  Country: None (occurrence: None)
  Receive Date: 20060530
  Receipt Date: 20060519
  Transmission Date: 20061013
  Serious: Yes (Other)
  Sender: FDA-Public Use
  Company Number: 2006BI004364

PATIENT
  Age: 48 Year
  Sex: Female

DRUGS (2)
  1. AVONEX [Suspect]
     Indication: MULTIPLE SCLEROSIS
     Dosage: 30 UG; QW; IM
     Route: 030
     Dates: start: 20030401
  2. AVONEX [Suspect]
     Indication: MULTIPLE SCLEROSIS
     Dosage: 30 UG

REACTIONS (7)
  - CONCUSSION [None]
  - CONDITION AGGRAVATED [None]
  - CONVULSION [None]
  - DIZZINESS [None]
  - HEADACHE [None]
  - MEMORY IMPAIRMENT [None]
  - STARING [None]
